FAERS Safety Report 25974824 (Version 1)
Quarter: 2025Q4

REPORT INFORMATION
  Report Type: Spontaneous
  Country: US (occurrence: US)
  Receive Date: 20251029
  Receipt Date: 20251029
  Transmission Date: 20260118
  Serious: No
  Sender: MALLINCKRODT
  Company Number: US-MALLINCKRODT-MNK202502608

PATIENT
  Sex: Female

DRUGS (14)
  1. CORTICOTROPIN [Suspect]
     Active Substance: CORTICOTROPIN
     Indication: Dermatomyositis
     Route: 058
  2. AMLODIPINE BESYLATE [Concomitant]
     Active Substance: AMLODIPINE BESYLATE
     Dosage: UNKNOWN
  3. B COMPLEX [CALCIUM PANTOTHENATE;CYANOCOBALAMIN;NICOTINAMIDE;PYRIDOXINE [Concomitant]
     Dosage: UNKNOWN
  4. CALCIUM [Concomitant]
     Active Substance: CALCIUM
     Dosage: UNKNOWN
  5. CELECOXIB [Concomitant]
     Active Substance: CELECOXIB
     Dosage: UNKNOWN
  6. LEVOTHYROXINE [Concomitant]
     Active Substance: LEVOTHYROXINE
     Dosage: UNKNOWN
  7. MAGNESIUM [Concomitant]
     Active Substance: MAGNESIUM
     Dosage: UNKNOWN
  8. MULTI VITAMIN [ASCORBIC ACID;FOLIC ACID;NICOTINIC ACID;PYRIDOXINE HYDR [Concomitant]
     Dosage: UNKNOWN
  9. OMEGA 3 6 9 [FISH OIL;LINUM USITATISSIMUM OIL;PINUS SIBIRICA] [Concomitant]
     Dosage: UNKNOWN
  10. POTASSIUM CHLORIDE [Concomitant]
     Active Substance: POTASSIUM CHLORIDE
     Dosage: UNKNOWN
  11. PROLIA [Concomitant]
     Active Substance: DENOSUMAB
     Dosage: UNKNOWN
  12. REMICADE [Concomitant]
     Active Substance: INFLIXIMAB
     Dosage: UNKNOWN
  13. TYLENOL [Concomitant]
     Active Substance: ACETAMINOPHEN
     Dosage: UNKNOWN
  14. MENADIONE [Concomitant]
     Active Substance: MENADIONE
     Dosage: UNKNOWN

REACTIONS (1)
  - Injection site bruising [Unknown]
